FAERS Safety Report 19270602 (Version 1)
Quarter: 2021Q2

REPORT INFORMATION
  Report Type: Spontaneous
  Country: US (occurrence: US)
  Receive Date: 20210518
  Receipt Date: 20210518
  Transmission Date: 20210717
  Serious: No
  Sender: FDA-Public Use
  Company Number: US-GW PHARMA-202105USGW02389

PATIENT

DRUGS (2)
  1. EPIDIOLEX [Suspect]
     Active Substance: CANNABIDIOL
     Indication: PARTIAL SEIZURES
     Dosage: 600 MG
     Route: 048
     Dates: start: 20200730
  2. EPIDIOLEX [Suspect]
     Active Substance: CANNABIDIOL
     Indication: FOCAL DYSCOGNITIVE SEIZURES

REACTIONS (2)
  - Product use in unapproved indication [Unknown]
  - Weight increased [Unknown]
